FAERS Safety Report 11777609 (Version 2)
Quarter: 2015Q4

REPORT INFORMATION
  Report Type: Spontaneous
  Country: JP (occurrence: JP)
  Receive Date: 20151125
  Receipt Date: 20151222
  Transmission Date: 20160304
  Serious: Yes (Hospitalization)
  Sender: FDA-Public Use
  Company Number: JP-GILEAD-2015-0181021

PATIENT
  Age: 68 Year
  Sex: Female
  Weight: 47.6 kg

DRUGS (2)
  1. HARVONI [Suspect]
     Active Substance: LEDIPASVIR\SOFOSBUVIR
     Indication: CHRONIC HEPATITIS C
     Dosage: UNK
     Route: 048
     Dates: start: 20151022, end: 20151029
  2. HARVONI [Suspect]
     Active Substance: LEDIPASVIR\SOFOSBUVIR
     Dosage: UNK
     Route: 048
     Dates: start: 20151102

REACTIONS (4)
  - Hypertension [Recovered/Resolved]
  - Sinus tachycardia [Recovered/Resolved]
  - Supraventricular extrasystoles [Recovered/Resolved]
  - Palpitations [Recovered/Resolved]

NARRATIVE: CASE EVENT DATE: 20151029
